FAERS Safety Report 8564115-9 (Version None)
Quarter: 2012Q3

REPORT INFORMATION
  Report Type: 
  Country: None (occurrence: None)
  Receive Date: 20120803
  Receipt Date: 20120724
  Transmission Date: 20120928
  Serious: Yes (Other)
  Sender: FDA-Public Use
  Company Number: US-PERRIGO-12US005044

PATIENT
  Sex: Male
  Weight: 87.982 kg

DRUGS (4)
  1. IBUPROFEN [Suspect]
     Indication: BACK PAIN
     Dosage: 400 MG, TID
     Route: 048
     Dates: start: 20120516, end: 20120527
  2. XODOL [Concomitant]
     Indication: PAIN
     Dosage: UNKNOWN, UNKNOWN
     Route: 048
  3. AMBIEN [Concomitant]
     Indication: INSOMNIA
     Dosage: UNKNOWN, UNKNOWN
     Route: 048
  4. OXYCODONE HCL [Concomitant]
     Indication: PAIN
     Dosage: UNKNOWN, UNKNOWN
     Route: 048

REACTIONS (4)
  - INCORRECT DRUG ADMINISTRATION DURATION [None]
  - HYPERSENSITIVITY [None]
  - URTICARIA [None]
  - RASH PRURITIC [None]
